FAERS Safety Report 13013086 (Version 1)
Quarter: 2016Q4

REPORT INFORMATION
  Report Type: Spontaneous
  Country: US (occurrence: US)
  Receive Date: 20161208
  Receipt Date: 20161208
  Transmission Date: 20170207
  Serious: Yes (Other)
  Sender: FDA-Public Use
  Company Number: None

PATIENT
  Age: 64 Year
  Sex: Female
  Weight: 60.75 kg

DRUGS (4)
  1. RESTASIS [Suspect]
     Active Substance: CYCLOSPORINE
     Indication: CATARACT OPERATION
     Route: 047
     Dates: end: 20161113
  2. OMEGA 3 [Concomitant]
     Active Substance: OMEGA-3 FATTY ACIDS
  3. TURMERIC [Concomitant]
     Active Substance: TURMERIC
  4. RESTASIS [Suspect]
     Active Substance: CYCLOSPORINE
     Indication: POSTOPERATIVE CARE
     Route: 047
     Dates: end: 20161113

REACTIONS (6)
  - Intentional product use issue [None]
  - Lacrimation increased [None]
  - Excessive eye blinking [None]
  - Eye irritation [None]
  - Condition aggravated [None]
  - Alopecia [None]
